FAERS Safety Report 5479140-4 (Version None)
Quarter: 2007Q4

REPORT INFORMATION
  Report Type: 
  Country: None (occurrence: None)
  Receive Date: 20071008
  Receipt Date: 20071002
  Transmission Date: 20080405
  Serious: Yes (Hospitalization)
  Sender: FDA-Public Use
  Company Number: JP-WYE-H00448607

PATIENT
  Sex: Male

DRUGS (21)
  1. HYPEN [Suspect]
     Dosage: 800 MG
     Route: 048
  2. HYPEN [Suspect]
     Dosage: 400 MG
     Route: 048
  3. ASPIRIN [Concomitant]
  4. GLIMEPIRIDE [Concomitant]
  5. AZOSEMIDE [Concomitant]
  6. NICORANDIL [Concomitant]
  7. AMBROXOL HYDROCHLORIDE [Concomitant]
  8. SERRAPEPTASE [Concomitant]
  9. CEFCAPENE PIVOXIL HYDROCHLORIDE [Concomitant]
  10. AZULENE [Concomitant]
  11. LAFUTIDINE [Concomitant]
  12. ALENDRONATE SODIUM [Concomitant]
  13. SARPOGRELATE HYDROCHLORIDE [Concomitant]
  14. LIMAPROST [Concomitant]
  15. TOCOPHEROL CONCENTRATE CAP [Concomitant]
  16. MAGNESIUM OXIDE [Concomitant]
  17. AZATHIOPRINE [Concomitant]
  18. PREDNISOLONE [Concomitant]
  19. ZOLPIDEM TARTRATE [Concomitant]
  20. POVIDONE IODINE [Concomitant]
  21. AMLODIPINE BESYLATE [Concomitant]

REACTIONS (2)
  - LOWER GASTROINTESTINAL HAEMORRHAGE [None]
  - MELAENA [None]
